FAERS Safety Report 4413200-1 (Version None)
Quarter: 2004Q3

REPORT INFORMATION
  Report Type: 
  Country: None (occurrence: None)
  Receive Date: 20040802
  Receipt Date: 20040802
  Transmission Date: 20050211
  Serious: Yes (Death, Life-Threatening, Hospitalization, Other)
  Sender: FDA-Public Use
  Company Number: None

PATIENT
  Sex: Male
  Weight: 84.369 kg

DRUGS (6)
  1. VISIPAQUE [Suspect]
     Indication: COMPUTERISED TOMOGRAM
     Dosage: 150 CC ONCE IV
     Route: 042
     Dates: start: 20040319, end: 20040319
  2. VISIPAQUE [Suspect]
     Indication: SCAN WITH CONTRAST
     Dosage: 150 CC ONCE IV
     Route: 042
     Dates: start: 20040319, end: 20040319
  3. FLUOCINONIDE [Concomitant]
  4. KETOCONAZOLE [Concomitant]
  5. LISINOPRIL [Concomitant]
  6. LOVASTATIN [Concomitant]

REACTIONS (7)
  - ANAPHYLACTIC REACTION [None]
  - CARDIAC ARREST [None]
  - HYPOPERFUSION [None]
  - HYPOXIC ENCEPHALOPATHY [None]
  - INJURY [None]
  - RENAL FAILURE ACUTE [None]
  - RESPIRATORY FAILURE [None]
